FAERS Safety Report 7210827-9 (Version None)
Quarter: 2011Q1

REPORT INFORMATION
  Report Type: 
  Country: None (occurrence: None)
  Receive Date: 20110105
  Receipt Date: 20101229
  Transmission Date: 20110831
  Serious: No
  Sender: FDA-Public Use
  Company Number: US-ROXANE LABORATORIES, INC.-2010-RO-01562RO

PATIENT
  Age: 33 Year
  Sex: Male

DRUGS (1)
  1. METHADONE [Suspect]
     Indication: DRUG DEPENDENCE
     Dosage: 440 MG
     Route: 048

REACTIONS (10)
  - POISONING [None]
  - ASTHENOPIA [None]
  - DRUG INEFFECTIVE [None]
  - SEDATION [None]
  - LIQUID PRODUCT PHYSICAL ISSUE [None]
  - PRODUCT TAMPERING [None]
  - PRODUCT TASTE ABNORMAL [None]
  - PRODUCT ODOUR ABNORMAL [None]
  - DISCOMFORT [None]
  - DRUG EFFECT DECREASED [None]
